FAERS Safety Report 5149607-7 (Version None)
Quarter: 2006Q4

REPORT INFORMATION
  Report Type: 
  Country: None (occurrence: None)
  Receive Date: 20061113
  Receipt Date: 20060608
  Transmission Date: 20070319
  Serious: No
  Sender: FDA-Public Use
  Company Number: US-GLAXOSMITHKLINE-A0608383A

PATIENT
  Age: 82 Year
  Sex: Male

DRUGS (6)
  1. COREG [Suspect]
     Dosage: 9.375MG TWICE PER DAY
     Route: 048
     Dates: start: 20060601
  2. KLONOPIN [Suspect]
  3. ACCUPRIL [Concomitant]
  4. CO Q10 [Concomitant]
  5. FOLIC ACID [Concomitant]
  6. ASPIRIN [Concomitant]

REACTIONS (4)
  - DYSPNOEA [None]
  - HEART RATE INCREASED [None]
  - OEDEMA PERIPHERAL [None]
  - RASH PRURITIC [None]
